FAERS Safety Report 8836596 (Version 2)
Quarter: 2013Q1

REPORT INFORMATION
  Report Type: Spontaneous
  Country: RU (occurrence: None)
  Receive Date: 20121009
  Receipt Date: 20121031
  Transmission Date: 20140127
  Serious: Yes (Hospitalization)
  Sender: FDA-Public Use
  Company Number: 2012RU0315

PATIENT
  Age: 1 Year
  Sex: Female
  Weight: 10 kg

DRUGS (3)
  1. ORFADIN [Suspect]
     Indication: TYROSINAEMIA
     Dates: start: 20120403
  2. TYROSIDONE (DIETARY SUPPLEMENT) [Concomitant]
  3. NAN (INFANT FORMULA) [Concomitant]

REACTIONS (1)
  - Epistaxis [None]
